FAERS Safety Report 13179867 (Version 2)
Quarter: 2017Q1

REPORT INFORMATION
  Report Type: Spontaneous
  Country: IT (occurrence: IT)
  Receive Date: 20170202
  Receipt Date: 20170313
  Transmission Date: 20170428
  Serious: Yes (Other)
  Sender: FDA-Public Use
  Company Number: IT-BAYER-2017-015844

PATIENT
  Age: 64 Year
  Sex: Male

DRUGS (2)
  1. SORAFENIB (RAF KINASE INHIBITOR) [Suspect]
     Active Substance: SORAFENIB
     Indication: METASTATIC RENAL CELL CARCINOMA
     Dosage: 800 MG, QD
     Route: 048
     Dates: start: 201312
  2. SORAFENIB (RAF KINASE INHIBITOR) [Suspect]
     Active Substance: SORAFENIB
     Indication: METASTATIC RENAL CELL CARCINOMA
     Dosage: 400 MG, QD
     Route: 048

REACTIONS (6)
  - Performance status decreased [None]
  - Palmar-plantar erythrodysaesthesia syndrome [None]
  - Fatigue [None]
  - Metastases to bone [None]
  - Thrombocytopenia [None]
  - Anaemia [None]

NARRATIVE: CASE EVENT DATE: 201406
